FAERS Safety Report 10476103 (Version 1)
Quarter: 2014Q3

REPORT INFORMATION
  Report Type: Spontaneous
  Country: GB (occurrence: GB)
  Receive Date: 20140925
  Receipt Date: 20140925
  Transmission Date: 20150326
  Serious: Yes (Other)
  Sender: FDA-Public Use
  Company Number: GB-PFIZER INC-2014262395

PATIENT
  Age: 55 Year
  Sex: Male
  Weight: 101.6 kg

DRUGS (1)
  1. ATORVASTATIN [Suspect]
     Active Substance: ATORVASTATIN
     Dosage: UNK

REACTIONS (2)
  - Erectile dysfunction [Recovered/Resolved]
  - Loss of libido [Recovered/Resolved]

NARRATIVE: CASE EVENT DATE: 20140612
